FAERS Safety Report 26160317 (Version 1)
Quarter: 2025Q4

REPORT INFORMATION
  Report Type: Report from Study
  Country: US (occurrence: US)
  Receive Date: 20251216
  Receipt Date: 20251216
  Transmission Date: 20260117
  Serious: Yes (Hospitalization, Other)
  Sender: JAZZ
  Company Number: US-JAZZ PHARMACEUTICALS-2025-US-005563

PATIENT
  Age: 3 Year
  Sex: Male

DRUGS (3)
  1. EPIDIOLEX [Suspect]
     Active Substance: CANNABIDIOL
     Indication: Product used for unknown indication
     Dosage: 2 MILLILITER, BID
     Dates: start: 20240801
  2. EPIDIOLEX [Suspect]
     Active Substance: CANNABIDIOL
     Dosage: 1.6 MILLILITER, BID
  3. ONFI [Concomitant]
     Active Substance: CLOBAZAM
     Indication: Product used for unknown indication
     Dosage: UNK

REACTIONS (7)
  - Surgery [Not Recovered/Not Resolved]
  - Weight increased [Not Recovered/Not Resolved]
  - Diarrhoea [Not Recovered/Not Resolved]
  - Seizure [Not Recovered/Not Resolved]
  - Seizure [Not Recovered/Not Resolved]
  - Somnolence [Not Recovered/Not Resolved]
  - Drug ineffective [Unknown]

NARRATIVE: CASE EVENT DATE: 20250227
